FAERS Safety Report 9558270 (Version 2)
Quarter: 2013Q4

REPORT INFORMATION
  Report Type: Report from Study
  Country: US (occurrence: US)
  Receive Date: 20130926
  Receipt Date: 20131002
  Transmission Date: 20140711
  Serious: Yes (Hospitalization)
  Sender: FDA-Public Use
  Company Number: US-CELGENEUS-163-21880-13092549

PATIENT
  Age: 66 Year
  Sex: Female
  Weight: 78.6 kg

DRUGS (11)
  1. REVLIMID [Suspect]
     Indication: PLASMA CELL MYELOMA
     Dosage: 25 MILLIGRAM
     Route: 048
     Dates: start: 20110411
  2. REVLIMID [Suspect]
     Route: 048
     Dates: start: 20130805, end: 20130821
  3. DEXAMETHASONE [Suspect]
     Indication: PRODUCT USED FOR UNKNOWN INDICATION
     Dosage: 20 MILLIGRAM
     Route: 048
     Dates: start: 20110411
  4. DEXAMETHASONE [Suspect]
     Dosage: 25 MILLIGRAM
     Route: 048
     Dates: start: 20130805, end: 20130826
  5. ZOMETA [Suspect]
     Indication: PRODUCT USED FOR UNKNOWN INDICATION
     Route: 041
  6. BORTEZOMIB [Concomitant]
     Indication: PLASMA CELL MYELOMA
     Route: 041
     Dates: start: 20110411
  7. ACYCLOVIR [Concomitant]
     Indication: PRODUCT USED FOR UNKNOWN INDICATION
     Dosage: 400 MILLIGRAM
     Route: 048
  8. PROZAC [Concomitant]
     Indication: PRODUCT USED FOR UNKNOWN INDICATION
     Dosage: 40 MILLIGRAM
     Route: 048
  9. ATIVAN [Concomitant]
     Indication: PRODUCT USED FOR UNKNOWN INDICATION
     Route: 048
  10. MS CONTIN [Concomitant]
     Indication: PRODUCT USED FOR UNKNOWN INDICATION
     Dosage: 120 MILLIGRAM
     Route: 048
  11. ASPIRIN [Concomitant]
     Indication: PRODUCT USED FOR UNKNOWN INDICATION
     Dosage: 325 MILLIGRAM
     Route: 065
     Dates: start: 20110411

REACTIONS (1)
  - Osteonecrosis of jaw [Unknown]
